FAERS Safety Report 23039000 (Version 9)
Quarter: 2023Q4

REPORT INFORMATION
  Report Type: Spontaneous
  Country: CN (occurrence: CN)
  Receive Date: 20231006
  Receipt Date: 20231225
  Transmission Date: 20240110
  Serious: Yes (Death, Hospitalization, Other)
  Sender: FDA-Public Use
  Company Number: CN-SANOFI-01782615

PATIENT
  Age: 68 Year
  Sex: Male

DRUGS (4)
  1. ELOXATIN [Suspect]
     Active Substance: OXALIPLATIN
     Dosage: 1 DF
     Route: 042
     Dates: start: 20230927, end: 202309
  2. FLUOROURACIL [Concomitant]
     Active Substance: FLUOROURACIL
     Dosage: UNK
     Dates: start: 20230906
  3. LEUCOVORIN CALCIUM [Concomitant]
     Active Substance: LEUCOVORIN CALCIUM
     Dosage: UNK
     Dates: start: 20230906
  4. CETUXIMAB [Concomitant]
     Active Substance: CETUXIMAB
     Dosage: UNK
     Dates: start: 20230906

REACTIONS (14)
  - Multiple organ dysfunction syndrome [Fatal]
  - Septic shock [Fatal]
  - Coma [Not Recovered/Not Resolved]
  - Brain oedema [Unknown]
  - Blood pressure abnormal [Unknown]
  - Somnolence [Unknown]
  - Hypersensitivity [Unknown]
  - Hypoaesthesia oral [Unknown]
  - Tension [Unknown]
  - Vomiting [Unknown]
  - Anaphylactic shock [Unknown]
  - Pyrexia [Unknown]
  - Diarrhoea [Unknown]
  - Product quality issue [Unknown]

NARRATIVE: CASE EVENT DATE: 20230927
